FAERS Safety Report 19491008 (Version 1)
Quarter: 2021Q3

REPORT INFORMATION
  Report Type: Spontaneous
  Country: DE (occurrence: DE)
  Receive Date: 20210705
  Receipt Date: 20210705
  Transmission Date: 20211014
  Serious: Yes (Death)
  Sender: FDA-Public Use
  Company Number: DE-009507513-2107DEU000005

PATIENT
  Age: 7 Decade
  Sex: Female

DRUGS (2)
  1. INLYTA [Suspect]
     Active Substance: AXITINIB
     Indication: CLEAR CELL RENAL CELL CARCINOMA
     Dosage: 5 MG, 2X/DAY, FILM?COATED TABLET
     Dates: start: 20200211
  2. PEMBROLIZUMAB. [Suspect]
     Active Substance: PEMBROLIZUMAB
     Indication: CLEAR CELL RENAL CELL CARCINOMA
     Dosage: 400 MG, EVERY 3 WEEKS
     Dates: start: 20200211

REACTIONS (3)
  - Off label use [Unknown]
  - Death [Fatal]
  - Neoplasm progression [Unknown]
